FAERS Safety Report 10480579 (Version 1)
Quarter: 2014Q3

REPORT INFORMATION
  Report Type: Spontaneous
  Country: US (occurrence: None)
  Receive Date: 20140925
  Receipt Date: 20140925
  Transmission Date: 20150326
  Serious: Yes (Hospitalization)
  Sender: FDA-Public Use
  Company Number: VAL_03404_2014

PATIENT
  Age: 11 Year
  Sex: Female

DRUGS (14)
  1. SODIUM BICARBONATE. [Concomitant]
     Active Substance: SODIUM BICARBONATE
  2. NUTROPIN AQ [Suspect]
     Active Substance: SOMATROPIN
     Indication: RENAL FAILURE CHRONIC
     Route: 058
  3. FISH OIL [Concomitant]
     Active Substance: FISH OIL
  4. SOLIRIS [Concomitant]
     Active Substance: ECULIZUMAB
  5. LASIX [Concomitant]
     Active Substance: FUROSEMIDE
  6. CLARITIN [Concomitant]
     Active Substance: LORATADINE
  7. ALLOPURINOL. [Concomitant]
     Active Substance: ALLOPURINOL
  8. IRON [Concomitant]
     Active Substance: IRON
  9. CALCITRIOL. [Suspect]
     Active Substance: CALCITRIOL
     Indication: PRODUCT USED FOR UNKNOWN INDICATION
     Route: 048
  10. BENADRYL [Concomitant]
     Active Substance: DIPHENHYDRAMINE HYDROCHLORIDE
  11. MULTIVITAMIN /02358601/ [Concomitant]
  12. TYLENOL /0020001/ [Concomitant]
  13. FERROUS SULFATE [Concomitant]
     Active Substance: FERROUS SULFATE\FERROUS SULFATE, DRIED
  14. ZOSYN [Concomitant]
     Active Substance: PIPERACILLIN SODIUM\TAZOBACTAM SODIUM

REACTIONS (10)
  - Tachycardia [None]
  - Malaise [None]
  - Hypotension [None]
  - Blood creatinine increased [None]
  - Pyrexia [None]
  - Rash maculo-papular [None]
  - Neutrophil count increased [None]
  - Haemolytic uraemic syndrome [None]
  - Influenza [None]
  - Eosinophil count increased [None]

NARRATIVE: CASE EVENT DATE: 20120222
